FAERS Safety Report 4934259-9 (Version None)
Quarter: 2006Q1

REPORT INFORMATION
  Report Type: 
  Country: None (occurrence: None)
  Receive Date: 20060303
  Receipt Date: 20060222
  Transmission Date: 20060701
  Serious: Yes (Hospitalization)
  Sender: FDA-Public Use
  Company Number: 2006027724

PATIENT
  Age: 61 Year
  Sex: Female

DRUGS (16)
  1. GENOTROPIN [Suspect]
     Indication: HYPOPITUITARISM
     Dosage: 0.8 MG (DAILY)
     Dates: start: 20011009
  2. HYDROCORTISONE [Concomitant]
  3. PENTASA [Concomitant]
  4. EMGESAN (MAGNESIUM HYDROXIDE) [Concomitant]
  5. K CL TAB [Concomitant]
  6. LEVOTHYROXINE SODIUM [Concomitant]
  7. LIOTHYRONINE [Concomitant]
  8. BEHEPAN (CYANOCOBALAMIN) [Concomitant]
  9. TRAMADOL HCL [Concomitant]
  10. ALVEDON (PARACETAMOL) [Concomitant]
  11. PRIMODIUM (LOPERAMIDE OXIDE) [Concomitant]
  12. SANDOMIGRIN (PIZOTIFEN MALEATE) [Concomitant]
  13. FOLACIN (CALCIUM PHOSPHATE, FOLIC ACID) [Concomitant]
  14. PHYTONADIONE [Concomitant]
  15. DEXOFEN ^ASTRA^ (DEXTROPROPOXYPHENE NAPSILATE) [Concomitant]
  16. METOPROLOL TARTRATE [Concomitant]

REACTIONS (8)
  - ANAEMIA [None]
  - BLOOD CHROMOGRANIN A INCREASED [None]
  - CARCINOID SYNDROME [None]
  - IRON DEFICIENCY [None]
  - IRON DEFICIENCY ANAEMIA [None]
  - MULTIPLE ENDOCRINE ADENOMATOSIS TYPE I [None]
  - NAUSEA [None]
  - VOMITING [None]
